FAERS Safety Report 4686330-7 (Version None)
Quarter: 2005Q2

REPORT INFORMATION
  Report Type: 
  Country: None (occurrence: None)
  Receive Date: 20050606
  Receipt Date: 20050525
  Transmission Date: 20051028
  Serious: Yes (Hospitalization)
  Sender: FDA-Public Use
  Company Number: 2005080302

PATIENT
  Age: 21 Year
  Sex: Male
  Weight: 54.4316 kg

DRUGS (1)
  1. SOLU-MEDROL [Suspect]
     Indication: PHARYNGEAL OEDEMA
     Dosage: ONE TIME DOSE
     Dates: start: 20050501, end: 20050501

REACTIONS (1)
  - TACHYCARDIA [None]
